FAERS Safety Report 10432107 (Version 1)
Quarter: 2014Q3

REPORT INFORMATION
  Report Type: Spontaneous
  Country: US (occurrence: US)
  Receive Date: 20140905
  Receipt Date: 20140905
  Transmission Date: 20150326
  Serious: No
  Sender: FDA-Public Use
  Company Number: US-SHIRE-US201405618

PATIENT
  Age: 49 Year
  Sex: Male
  Weight: 90.7 kg

DRUGS (3)
  1. VYVANSE [Suspect]
     Active Substance: LISDEXAMFETAMINE DIMESYLATE
     Dosage: 50 MG, 1X/DAY:QD (MONDAY THROUGH FRIDAY)
     Route: 048
     Dates: start: 20140709, end: 20140805
  2. VYVANSE [Suspect]
     Active Substance: LISDEXAMFETAMINE DIMESYLATE
     Indication: ATTENTION DEFICIT/HYPERACTIVITY DISORDER
     Dosage: 60 MG, 1X/DAY:QD (MONDAY THROUGH FRIDAY)
     Route: 048
     Dates: start: 20140806, end: 20140902
  3. VYVANSE [Suspect]
     Active Substance: LISDEXAMFETAMINE DIMESYLATE
     Dosage: 30 MG, 1X/DAY:QD (MONDAY THROUGH FRIDAY)
     Route: 048
     Dates: end: 20140708

REACTIONS (2)
  - Insomnia [Recovered/Resolved]
  - Poor peripheral circulation [Recovering/Resolving]

NARRATIVE: CASE EVENT DATE: 201408
